FAERS Safety Report 9704859 (Version 2)
Quarter: 2013Q4

REPORT INFORMATION
  Report Type: Report from Study
  Country: US (occurrence: US)
  Receive Date: 20131122
  Receipt Date: 20131206
  Transmission Date: 20140711
  Serious: Yes (Disabling, Other)
  Sender: FDA-Public Use
  Company Number: US-ROCHE-1306255

PATIENT
  Age: 74 Year
  Sex: Female

DRUGS (3)
  1. LUCENTIS [Suspect]
     Indication: AGE-RELATED MACULAR DEGENERATION
     Route: 050
     Dates: start: 20131114
  2. AVASTIN [Suspect]
     Indication: AGE-RELATED MACULAR DEGENERATION
     Route: 065
  3. EVISTA [Concomitant]

REACTIONS (7)
  - Blindness [Recovered/Resolved]
  - Corneal oedema [Unknown]
  - Therapeutic response decreased [Unknown]
  - Intraocular pressure decreased [Recovering/Resolving]
  - Fear [Unknown]
  - Intraocular pressure increased [Unknown]
  - Blindness transient [Unknown]
